FAERS Safety Report 19394303 (Version 5)
Quarter: 2021Q2

REPORT INFORMATION
  Report Type: Report from Study
  Country: None (occurrence: GB)
  Receive Date: 20210609
  Receipt Date: 20210629
  Transmission Date: 20210717
  Serious: Yes (Hospitalization, Other)
  Sender: FDA-Public Use
  Company Number: GB-ABBVIE-21K-167-3939276-00

PATIENT
  Sex: Female

DRUGS (3)
  1. DUODOPA [Suspect]
     Active Substance: CARBIDOPA\LEVODOPA
     Indication: PARKINSON^S DISEASE
     Dosage: DUODOPA 20MG/5MG MORNING DOSE: 6.8 MLS, CONTINUOUS RATE: 3MLS, EXTRA DOSE: 2MLS.
     Route: 050
     Dates: start: 2016
  2. DUODOPA [Suspect]
     Active Substance: CARBIDOPA\LEVODOPA
     Dosage: MORNING DOSE 6.8MLS; CONTINUOUS RATE 2.6ML; EXTRA DOSE 2MLS
     Route: 050
     Dates: start: 20210624
  3. DUODOPA [Suspect]
     Active Substance: CARBIDOPA\LEVODOPA
     Dosage: MORNING DOSE 6.8MLS; CONTINUOUS RATE 2.8ML; EXTRA DOSE 2MLS
     Route: 050
     Dates: end: 20210624

REACTIONS (10)
  - Hip fracture [Unknown]
  - Device issue [Recovered/Resolved]
  - Drug level increased [Unknown]
  - Hypophagia [Unknown]
  - Weight decreased [Unknown]
  - Dyskinesia [Recovering/Resolving]
  - Gait inability [Unknown]
  - Fall [Unknown]
  - Drug intolerance [Unknown]
  - Hallucination [Unknown]
